FAERS Safety Report 5146309-8 (Version None)
Quarter: 2006Q4

REPORT INFORMATION
  Report Type: 
  Country: None (occurrence: None)
  Receive Date: 20061102
  Receipt Date: 20061018
  Transmission Date: 20070319
  Serious: Yes (Death, Life-Threatening, Hospitalization)
  Sender: FDA-Public Use
  Company Number: PAR_0882_2006

PATIENT
  Age: 15 Year
  Sex: Male

DRUGS (4)
  1. VALPROIC ACID [Suspect]
     Dosage: DF
  2. DEXEDRINE [Concomitant]
  3. RISPERDAL [Concomitant]
  4. CYPROHEPTADINE HCL [Concomitant]

REACTIONS (30)
  - AMMONIA INCREASED [None]
  - ANOREXIA [None]
  - AUTONOMIC NERVOUS SYSTEM IMBALANCE [None]
  - BRAIN OEDEMA [None]
  - BRAIN SCAN ABNORMAL [None]
  - BRAIN STEM SYNDROME [None]
  - CARBAMOYL PHOSPHATE SYNTHETASE DEFICIENCY [None]
  - CEREBRAL HYPOPERFUSION [None]
  - CEREBROVASCULAR DISORDER [None]
  - CONFUSIONAL STATE [None]
  - CONVULSION [None]
  - DEMENTIA ALZHEIMER'S TYPE [None]
  - DEPRESSED LEVEL OF CONSCIOUSNESS [None]
  - DIABETES INSIPIDUS [None]
  - DYSARTHRIA [None]
  - ELECTROENCEPHALOGRAM ABNORMAL [None]
  - ENCEPHALOPATHY [None]
  - EOSINOPHILIA [None]
  - GAIT DISTURBANCE [None]
  - HAEMODIALYSIS [None]
  - HEPATIC ENZYME ABNORMAL [None]
  - HERNIA [None]
  - HYPERTENSION [None]
  - HYPERTROPHY [None]
  - HYPOTONIA [None]
  - LETHARGY [None]
  - OEDEMA [None]
  - ORNITHINE TRANSCARBAMOYLASE DEFICIENCY [None]
  - STATUS EPILEPTICUS [None]
  - TONSILLAR DISORDER [None]
